FAERS Safety Report 20052368 (Version 1)
Quarter: 2021Q4

REPORT INFORMATION
  Report Type: Spontaneous
  Country: FR (occurrence: FR)
  Receive Date: 20211110
  Receipt Date: 20211110
  Transmission Date: 20220303
  Serious: Yes (Hospitalization)
  Sender: FDA-Public Use
  Company Number: None

PATIENT
  Age: 47 Year
  Sex: Male
  Weight: 92 kg

DRUGS (17)
  1. METHYLPREDNISOLONE [Suspect]
     Active Substance: METHYLPREDNISOLONE
     Indication: Hodgkin^s disease
     Dosage: 80 MILLIGRAM, QD (80MG ??? J1)
     Route: 041
     Dates: start: 20210622, end: 20210622
  2. METHYLPREDNISOLONE [Suspect]
     Active Substance: METHYLPREDNISOLONE
     Dosage: 80 MILLIGRAM, QD (80MG ??? J1)
     Route: 041
     Dates: start: 20210713, end: 20210713
  3. PREDNISONE [Suspect]
     Active Substance: PREDNISONE
     Indication: Hodgkin^s disease
     Dosage: 80 MILLIGRAM, QD (80MG PAR JOUR PENDANT 6 JOURS)
     Route: 048
     Dates: start: 20210714, end: 20210719
  4. PREDNISONE [Suspect]
     Active Substance: PREDNISONE
     Dosage: 80 MILLIGRAM, QD (80MG PAR JOUR PENDANT 11 JOURS)
     Route: 048
     Dates: start: 20210623, end: 20210628
  5. DOXORUBICIN HYDROCHLORIDE [Suspect]
     Active Substance: DOXORUBICIN HYDROCHLORIDE
     Indication: Hodgkin^s disease
     Dosage: 70 MILLIGRAM
     Route: 041
     Dates: start: 20210713, end: 20210713
  6. DOXORUBICIN HYDROCHLORIDE [Suspect]
     Active Substance: DOXORUBICIN HYDROCHLORIDE
     Dosage: 70 MILLIGRAM
     Route: 041
     Dates: start: 20210622, end: 20210622
  7. BLEOMYCIN SULFATE [Suspect]
     Active Substance: BLEOMYCIN SULFATE
     Indication: Hodgkin^s disease
     Dosage: 20 MILLIGRAM, QD (20MG ??? J8)
     Route: 041
     Dates: start: 20210629, end: 20210629
  8. VINCRISTINE SULFATE [Suspect]
     Active Substance: VINCRISTINE SULFATE
     Indication: Hodgkin^s disease
     Dosage: 2 MILLIGRAM, QD (2MG ??? J8)
     Route: 041
     Dates: start: 20210629, end: 20210629
  9. PROCARBAZINE [Suspect]
     Active Substance: PROCARBAZINE
     Indication: Hodgkin^s disease
     Dosage: 200 MILLIGRAM, QD (200MG PAR JOUR PENDANT 7 JOURS)
     Route: 048
     Dates: start: 20210623, end: 20210629
  10. PROCARBAZINE [Suspect]
     Active Substance: PROCARBAZINE
     Dosage: 200 MILLIGRAM, QD (200MG PAR JOUR PENDANT 7 JOURS)
     Route: 048
     Dates: start: 20210714, end: 20210720
  11. ETOPOSIDE [Suspect]
     Active Substance: ETOPOSIDE
     Indication: Hodgkin^s disease
     Dosage: 400 MILLIGRAM, QD (200MG DEUX FOIS PAR JOUR ??? J2 ET J3)
     Route: 048
     Dates: start: 20210714, end: 20210715
  12. ETOPOSIDE [Suspect]
     Active Substance: ETOPOSIDE
     Dosage: 800 MILLIGRAM, QD (200MG DEUX FOIS PAR JOUR ??? J2 ET J3)
     Route: 048
     Dates: start: 20210623, end: 20210624
  13. ETOPOSIDE [Suspect]
     Active Substance: ETOPOSIDE
     Dosage: 400 MILLIGRAM, QD (400MG ??? J1)
     Route: 041
     Dates: start: 20210713, end: 20210713
  14. ETOPOSIDE [Suspect]
     Active Substance: ETOPOSIDE
     Dosage: 400 MILLIGRAM, QD (400MG ??? J1)
     Route: 041
     Dates: start: 20210622, end: 20210622
  15. CYCLOPHOSPHAMIDE [Suspect]
     Active Substance: CYCLOPHOSPHAMIDE
     Indication: Hodgkin^s disease
     Dosage: 2500 MILLIGRAM
     Route: 041
     Dates: start: 20210713, end: 20210713
  16. CYCLOPHOSPHAMIDE [Suspect]
     Active Substance: CYCLOPHOSPHAMIDE
     Dosage: 2500 MILLIGRAM
     Route: 041
     Dates: start: 20210622, end: 20210622
  17. COMIRNATY [Suspect]
     Active Substance: TOZINAMERAN
     Indication: COVID-19 immunisation
     Dosage: 1 DOSAGE FORM, ONCE
     Route: 030
     Dates: start: 20210614, end: 20210614

REACTIONS (2)
  - Myocardial infarction [Recovering/Resolving]
  - Coronary artery thrombosis [Recovering/Resolving]

NARRATIVE: CASE EVENT DATE: 20210719
